FAERS Safety Report 25937120 (Version 1)
Quarter: 2025Q4

REPORT INFORMATION
  Report Type: Spontaneous
  Country: US (occurrence: US)
  Receive Date: 20251017
  Receipt Date: 20251017
  Transmission Date: 20260118
  Serious: No
  Sender: INCYTE
  Company Number: US-EVENT-004583

PATIENT

DRUGS (1)
  1. JAKAFI [Suspect]
     Active Substance: RUXOLITINIB
     Indication: Chronic myeloid leukaemia
     Dosage: 20 MILLIGRAM, BID

REACTIONS (5)
  - Dyspepsia [Unknown]
  - Palpitations [Unknown]
  - Feeling jittery [Unknown]
  - Anxiety [Unknown]
  - Off label use [Unknown]
